FAERS Safety Report 4460037-3 (Version None)
Quarter: 2004Q3

REPORT INFORMATION
  Report Type: 
  Country: None (occurrence: None)
  Receive Date: 20040928
  Receipt Date: 20030930
  Transmission Date: 20050211
  Serious: No
  Sender: FDA-Public Use
  Company Number: US-GLAXOSMITHKLINE-A0427940A

PATIENT
  Age: 68 Year
  Sex: Female
  Weight: 50 kg

DRUGS (10)
  1. SEREVENT [Suspect]
     Indication: ASTHMA
     Dosage: 1PUFF PER DAY
     Route: 055
     Dates: start: 20030910, end: 20030916
  2. FLOVENT [Concomitant]
     Dosage: 220MCG TWICE PER DAY
     Route: 055
  3. NASONEX [Concomitant]
     Dosage: 1PUFF TWICE PER DAY
     Route: 055
     Dates: start: 20011101
  4. INTAL [Concomitant]
     Route: 055
     Dates: start: 19940101
  5. SYNTHROID [Concomitant]
     Indication: HYPOTHYROIDISM
     Route: 048
     Dates: start: 19920101
  6. ZESTRIL [Concomitant]
     Indication: HYPERTENSION
     Dosage: 10MG PER DAY
     Route: 048
     Dates: start: 19990101
  7. HYDROCHLOROTHIAZIDE [Concomitant]
     Indication: HYPERTENSION
     Dosage: 25MG PER DAY
     Route: 048
     Dates: start: 19990101
  8. FOSAMAX [Concomitant]
     Indication: OSTEOPOROSIS
     Route: 048
     Dates: start: 19990101
  9. ALUPENT [Concomitant]
     Indication: ASTHMA
     Dosage: 2PUFF UNKNOWN
     Route: 055
  10. MIACALCIN [Concomitant]
     Indication: ASTHMA
     Route: 045
     Dates: start: 20020101

REACTIONS (3)
  - DYSPNOEA [None]
  - HEADACHE [None]
  - TREMOR [None]
